FAERS Safety Report 4282869-7 (Version None)
Quarter: 2004Q1

REPORT INFORMATION
  Report Type: 
  Country: None (occurrence: None)
  Receive Date: 20040130
  Receipt Date: 20030731
  Transmission Date: 20041129
  Serious: Yes (Other)
  Sender: FDA-Public Use
  Company Number: US-BRISTOL-MYERS SQUIBB COMPANY-12342531

PATIENT
  Sex: Male

DRUGS (2)
  1. SERZONE [Suspect]
     Indication: ANXIETY
     Dosage: THERAPY DURATION - ^5 MONTHS AND 4 DAYS^
     Route: 048
     Dates: start: 19991124, end: 20000428
  2. SERZONE [Suspect]
     Indication: NERVOUS SYSTEM DISORDER
     Dosage: THERAPY DURATION - ^5 MONTHS AND 4 DAYS^
     Route: 048
     Dates: start: 19991124, end: 20000428

REACTIONS (1)
  - HEPATOCELLULAR DAMAGE [None]
